FAERS Safety Report 5586172-4 (Version None)
Quarter: 2008Q1

REPORT INFORMATION
  Report Type: 
  Country: None (occurrence: None)
  Receive Date: 20080107
  Receipt Date: 20071227
  Transmission Date: 20080703
  Serious: Yes (Hospitalization)
  Sender: FDA-Public Use
  Company Number: 2007US002187

PATIENT
  Age: 43 Year
  Sex: Male

DRUGS (11)
  1. PROGRAF [Suspect]
     Indication: LIVER TRANSPLANT
     Dates: start: 20061202, end: 20061206
  2. MYCOPHENOLATE MOFETIL [Suspect]
     Indication: LIVER TRANSPLANT
     Dosage: 1000 MG, ORAL
     Route: 048
     Dates: start: 20061030, end: 20070119
  3. SIROLIMUS(SIROLIMUS) [Suspect]
     Indication: LIVER TRANSPLANT
     Dosage: 3 MG, ORAL
     Route: 048
     Dates: start: 20061109
  4. PREDNISONE [Suspect]
     Indication: LIVER TRANSPLANT
     Dosage: 7.5 MG, ORAL
     Route: 048
     Dates: start: 20061030
  5. SEPTRA [Concomitant]
  6. VALCYTE [Concomitant]
  7. ASPIRIN [Concomitant]
  8. NEXIUM [Concomitant]
  9. URSODIOL (URSODEOXYCHOLIC ACID) [Concomitant]
  10. COLAZAL (BALSALAZIDE SODIUM) [Concomitant]
  11. NYSTATIN [Concomitant]

REACTIONS (2)
  - ANASTOMOTIC STENOSIS [None]
  - HEPATIC ARTERY THROMBOSIS [None]
